FAERS Safety Report 6117336-9 (Version None)
Quarter: 2009Q1

REPORT INFORMATION
  Report Type: 
  Country: None (occurrence: None)
  Receive Date: 20090314
  Receipt Date: 20090113
  Transmission Date: 20090719
  Serious: No
  Sender: FDA-Public Use
  Company Number: US-ABBOTT-09P-163-0497905-00

PATIENT
  Sex: Male
  Weight: 86.26 kg

DRUGS (5)
  1. HUMIRA [Suspect]
     Indication: PSORIATIC ARTHROPATHY
     Route: 058
     Dates: start: 20080401
  2. METHOTREXATE [Concomitant]
     Indication: PSORIATIC ARTHROPATHY
     Dosage: 3 PILLS WEEKLY
     Route: 048
  3. FOLIC ACID [Concomitant]
     Indication: PSORIATIC ARTHROPATHY
     Dosage: 2 PILLS DAILY
     Route: 048
  4. PREDNISONE [Concomitant]
     Indication: INFLAMMATION
     Dosage: 1 PILL DAILY
     Route: 048
  5. PREDNISONE [Concomitant]
     Indication: SKIN DISORDER

REACTIONS (4)
  - INJECTION SITE NODULE [None]
  - INJECTION SITE SWELLING [None]
  - PRURITUS [None]
  - RASH [None]
